FAERS Safety Report 4349369-7 (Version None)
Quarter: 2004Q2

REPORT INFORMATION
  Report Type: 
  Country: None (occurrence: None)
  Receive Date: 20040426
  Receipt Date: 20040412
  Transmission Date: 20050107
  Serious: No
  Sender: FDA-Public Use
  Company Number: CIP04000083

PATIENT
  Age: 70 Year
  Sex: Female

DRUGS (3)
  1. ACTONEL [Suspect]
     Indication: OSTEOPOROSIS
     Dosage: 2.5 MG DAILY ORAL
     Route: 048
     Dates: start: 20030717, end: 20040108
  2. ONE-ALPHA (ALFACALCIDOL) [Concomitant]
  3. ASPARA-CA (ASPARTATE CALCIUM) [Concomitant]

REACTIONS (4)
  - DERMATITIS EXFOLIATIVE [None]
  - DRUG ERUPTION [None]
  - ERYTHEMA [None]
  - PRURITUS [None]
